FAERS Safety Report 5322403-3 (Version None)
Quarter: 2007Q2

REPORT INFORMATION
  Report Type: 
  Country: None (occurrence: None)
  Receive Date: 20070511
  Receipt Date: 20070501
  Transmission Date: 20071010
  Serious: Yes (Other)
  Sender: FDA-Public Use
  Company Number: US-ELI_LILLY_AND_COMPANY-US200705000368

PATIENT
  Age: 69 Year
  Sex: Female

DRUGS (8)
  1. FORTEO [Suspect]
     Indication: OSTEOPOROSIS
     Dosage: 20 UG, UNK
     Dates: start: 20070403
  2. FOSAMAX [Concomitant]
  3. BONIVA [Concomitant]
  4. CALCIUM CHLORIDE [Concomitant]
  5. VITAMIN D [Concomitant]
  6. MACRODANTIN [Concomitant]
  7. ATENOLOL [Concomitant]
  8. ALLERGY MEDICATION [Concomitant]

REACTIONS (1)
  - LOSS OF CONSCIOUSNESS [None]
